FAERS Safety Report 5123128-X (Version None)
Quarter: 2006Q4

REPORT INFORMATION
  Report Type: 
  Country: None (occurrence: None)
  Receive Date: 20061009
  Receipt Date: 20060901
  Transmission Date: 20070319
  Serious: Yes (Hospitalization, Other)
  Sender: FDA-Public Use
  Company Number: US-MERCK-0609USA00436

PATIENT
  Age: 66 Year
  Sex: Female
  Weight: 57 kg

DRUGS (19)
  1. FOSAMAX [Suspect]
     Indication: OSTEOPOROSIS
     Route: 048
     Dates: start: 20050301, end: 20060101
  2. DOCUSATE SODIUM [Concomitant]
     Indication: CONSTIPATION
     Route: 048
  3. HYDREA [Suspect]
     Route: 065
     Dates: end: 20060810
  4. PREDNISONE TAB [Concomitant]
     Route: 048
  5. COLCHICINE [Concomitant]
     Indication: GOUT
     Route: 048
  6. CALCIUM (UNSPECIFIED) AND VITAMIN D (UNSPECIFIED) [Concomitant]
     Indication: VITAMIN SUPPLEMENTATION
     Route: 048
  7. LEVOTHYROXINE SODIUM [Concomitant]
     Indication: HYPOTHYROIDISM
     Route: 048
  8. ACIDOPHILUS [Concomitant]
     Route: 048
  9. ASPIRIN [Concomitant]
     Route: 048
  10. PROTONIX [Concomitant]
     Route: 048
  11. ALLOPURINOL SODIUM [Concomitant]
     Route: 048
  12. TOPROL-XL [Concomitant]
     Route: 065
  13. ALLEGRA [Concomitant]
     Indication: RASH
     Route: 048
  14. BENADRYL [Concomitant]
     Indication: RASH
     Route: 048
  15. CARAFATE [Concomitant]
     Route: 048
  16. MULTI-VITAMINS [Concomitant]
     Route: 048
  17. ZINC (UNSPECIFIED) [Concomitant]
     Route: 065
  18. ASCORBIC ACID [Concomitant]
     Route: 048
  19. MILK OF MAGNESIA TAB [Concomitant]
     Route: 048

REACTIONS (25)
  - ALANINE AMINOTRANSFERASE INCREASED [None]
  - AORTITIS [None]
  - ARTHRALGIA [None]
  - ASPARTATE AMINOTRANSFERASE INCREASED [None]
  - BAND NEUTROPHIL PERCENTAGE INCREASED [None]
  - BLOOD ALKALINE PHOSPHATASE INCREASED [None]
  - CELLULITIS [None]
  - CONFUSIONAL STATE [None]
  - EOSINOPHIL PERCENTAGE INCREASED [None]
  - ERYTHEMA [None]
  - HAEMATOCRIT DECREASED [None]
  - HAEMOGLOBIN DECREASED [None]
  - INSOMNIA [None]
  - LYMPHOCYTE PERCENTAGE INCREASED [None]
  - MONOCYTE PERCENTAGE DECREASED [None]
  - OEDEMA PERIPHERAL [None]
  - OSTEOMYELITIS [None]
  - PERICARDITIS [None]
  - PYREXIA [None]
  - RASH MACULO-PAPULAR [None]
  - SKIN LESION [None]
  - SKIN ULCER [None]
  - STAPHYLOCOCCAL INFECTION [None]
  - TREMOR [None]
  - WOUND INFECTION STAPHYLOCOCCAL [None]
